FAERS Safety Report 14559206 (Version 1)
Quarter: 2018Q1

REPORT INFORMATION
  Report Type: Spontaneous
  Country: US (occurrence: US)
  Receive Date: 20180221
  Receipt Date: 20180221
  Transmission Date: 20180509
  Serious: Yes (Life-Threatening, Hospitalization, Disabling, Other)
  Sender: FDA-Public Use
  Company Number: None

PATIENT
  Age: 77 Year
  Sex: Female
  Weight: 72.57 kg

DRUGS (2)
  1. LIMBREL [Suspect]
     Active Substance: DIETARY SUPPLEMENT\FLAVOCOXID
     Indication: ARTHRITIS
     Route: 048
     Dates: start: 2016, end: 20171121
  2. DICLOFENAC POTASSIUM. [Concomitant]
     Active Substance: DICLOFENAC POTASSIUM

REACTIONS (18)
  - Vomiting [None]
  - Nausea [None]
  - Diarrhoea [None]
  - Muscular weakness [None]
  - Pain in extremity [None]
  - Pulmonary congestion [None]
  - Dyspnoea [None]
  - Balance disorder [None]
  - Memory impairment [None]
  - Syncope [None]
  - Heart rate decreased [None]
  - Weight decreased [None]
  - Fatigue [None]
  - Decreased appetite [None]
  - Blood pressure decreased [None]
  - Hyperhidrosis [None]
  - Chest pain [None]
  - Impaired self-care [None]

NARRATIVE: CASE EVENT DATE: 2016
